FAERS Safety Report 12398389 (Version 1)
Quarter: 2016Q2

REPORT INFORMATION
  Report Type: Spontaneous
  Country: NO (occurrence: NO)
  Receive Date: 20160524
  Receipt Date: 20160524
  Transmission Date: 20160815
  Serious: Yes (Hospitalization)
  Sender: FDA-Public Use
  Company Number: NO-JNJFOC-20160517309

PATIENT
  Age: 43 Year
  Sex: Male

DRUGS (2)
  1. SPORANOX [Suspect]
     Active Substance: ITRACONAZOLE
     Indication: ONYCHOMYCOSIS
     Route: 048
     Dates: start: 20160101, end: 20160331
  2. ZYRTEC [Suspect]
     Active Substance: CETIRIZINE HYDROCHLORIDE
     Indication: RASH
     Route: 048
     Dates: start: 2016

REACTIONS (5)
  - Dyspnoea [Not Recovered/Not Resolved]
  - Gastritis [Unknown]
  - Rash [Recovering/Resolving]
  - Dry mouth [Not Recovered/Not Resolved]
  - Pruritus [Recovering/Resolving]

NARRATIVE: CASE EVENT DATE: 201602
